FAERS Safety Report 20560994 (Version 1)
Quarter: 2022Q1

REPORT INFORMATION
  Report Type: Spontaneous
  Country: VN (occurrence: VN)
  Receive Date: 20220307
  Receipt Date: 20220307
  Transmission Date: 20220424
  Serious: Yes (Other)
  Sender: FDA-Public Use
  Company Number: VN-GILEAD-2022-0571938

PATIENT
  Age: 37 Year
  Sex: Female

DRUGS (17)
  1. VEKLURY [Suspect]
     Active Substance: REMDESIVIR
     Indication: COVID-19
     Dosage: 200 MG
     Route: 065
     Dates: start: 2021
  2. OXYGEN [Concomitant]
     Active Substance: OXYGEN
     Dosage: 3 L/MINUTE; 6 L PER MINUTE
  3. OXYGEN [Concomitant]
     Active Substance: OXYGEN
     Dosage: BAG 12 L /MINUTE
  4. OXYGEN [Concomitant]
     Active Substance: OXYGEN
     Dosage: TIDAL VOLUME (VT) 350, PEEP 10 ;FIO2) 100%
  5. OXYGEN [Concomitant]
     Active Substance: OXYGEN
     Dosage: PEEP AT 16 CM H2O
  6. OXYGEN [Concomitant]
     Active Substance: OXYGEN
     Dosage: HFNCL
  7. DEXAMETHASONE [Concomitant]
     Active Substance: DEXAMETHASONE
     Dosage: 4 MG/1 ML ? 2 AMPOULES
  8. DEXAMETHASONE [Concomitant]
     Active Substance: DEXAMETHASONE
     Dosage: REDUCED TO STANDARD DOSE  4 MG/1M X2 AMPULES
  9. AMOXICILLIN\CLAVULANIC ACID [Concomitant]
     Active Substance: AMOXICILLIN\CLAVULANIC ACID
  10. POTASSIUM CHLORIDE [Concomitant]
     Active Substance: POTASSIUM CHLORIDE
     Dosage: 10%
  11. METHYLPREDNISOLONE [Concomitant]
     Active Substance: METHYLPREDNISOLONE
     Dosage: 125 MG X3 VIALS
  12. METHYLPREDNISOLONE [Concomitant]
     Active Substance: METHYLPREDNISOLONE
     Dosage: 125 MG X4 VIALS
  13. METHYLPREDNISOLONE [Concomitant]
     Active Substance: METHYLPREDNISOLONE
     Dosage: 125 MG X 8 VIALS
  14. METHYLPREDNISOLONE [Concomitant]
     Active Substance: METHYLPREDNISOLONE
     Dosage: REDUCED TO 125 MG X3 VIALS
  15. ENOXAPARIN [Concomitant]
     Active Substance: ENOXAPARIN
  16. PIPERACILLIN AND TAZOBACTAM [Concomitant]
     Active Substance: PIPERACILLIN SODIUM\TAZOBACTAM SODIUM
  17. FUROSEMIDE [Concomitant]
     Active Substance: FUROSEMIDE

REACTIONS (2)
  - Abortion induced [Recovered/Resolved]
  - Maternal exposure during pregnancy [Recovered/Resolved]

NARRATIVE: CASE EVENT DATE: 20210101
